FAERS Safety Report 7287439-4 (Version None)
Quarter: 2011Q1

REPORT INFORMATION
  Report Type: 
  Country: None (occurrence: None)
  Receive Date: 20110211
  Receipt Date: 20110127
  Transmission Date: 20110831
  Serious: Yes (Other)
  Sender: FDA-Public Use
  Company Number: NZ-RANBAXY-2010RR-39008

PATIENT
  Age: 81 Year
  Sex: Male

DRUGS (8)
  1. DIGOXIN [Concomitant]
  2. CILAZAPRIL [Concomitant]
  3. LEVOTHYROXINE SODIUM [Concomitant]
  4. PANTOPRAZOLE [Concomitant]
  5. ASPIRIN [Concomitant]
  6. OXYBUTYNIN [Concomitant]
  7. MINOCYCLINE HCL [Suspect]
     Indication: ROSACEA
     Dosage: 50 MG, BID
     Route: 048
  8. FUROSEMIDE [Concomitant]

REACTIONS (2)
  - PIGMENTATION DISORDER [None]
  - SCLERAL PIGMENTATION [None]
